FAERS Safety Report 12452421 (Version 2)
Quarter: 2016Q2

REPORT INFORMATION
  Report Type: Spontaneous
  Country: US (occurrence: US)
  Receive Date: 20160609
  Receipt Date: 20160609
  Transmission Date: 20160815
  Serious: No
  Sender: FDA-Public Use
  Company Number: US-ASTELLAS-2016US000778

PATIENT
  Age: 35 Year
  Sex: Male

DRUGS (5)
  1. TACROLIMUS. [Suspect]
     Active Substance: TACROLIMUS
     Indication: PROPHYLAXIS AGAINST GRAFT VERSUS HOST DISEASE
     Dosage: 2160 MCG (90 MCG/HR), UNKNOWN FREQ.
     Route: 042
     Dates: start: 20151015, end: 20151015
  2. TACROLIMUS. [Suspect]
     Active Substance: TACROLIMUS
     Dosage: 1728 MCG (72 MCG/HR), UNKNOWN FREQ.
     Route: 042
     Dates: start: 20151022, end: 20151025
  3. TACROLIMUS. [Suspect]
     Active Substance: TACROLIMUS
     Dosage: 1296 MCG (54 MCG/HR), UNKNOWN FREQ.
     Route: 042
     Dates: start: 20151025, end: 20151031
  4. TACROLIMUS. [Suspect]
     Active Substance: TACROLIMUS
     Indication: PROPHYLAXIS AGAINST GRAFT VERSUS HOST DISEASE
     Route: 048
     Dates: start: 20151101, end: 20151119
  5. TACROLIMUS. [Suspect]
     Active Substance: TACROLIMUS
     Route: 048
     Dates: start: 20151120

REACTIONS (1)
  - Off label use [Unknown]

NARRATIVE: CASE EVENT DATE: 20151015
